FAERS Safety Report 6793397-9 (Version None)
Quarter: 2010Q2

REPORT INFORMATION
  Report Type: 
  Country: None (occurrence: None)
  Receive Date: 20100624
  Receipt Date: 20100308
  Transmission Date: 20101027
  Serious: Yes (Other)
  Sender: FDA-Public Use
  Company Number: US-MYLANLABS-2010S1001901

PATIENT
  Age: 52 Year
  Sex: Female

DRUGS (13)
  1. CLOZAPINE [Suspect]
     Indication: SCHIZOPHRENIA
     Route: 048
     Dates: start: 20091001, end: 20100204
  2. BETHANECHOL [Concomitant]
     Route: 048
  3. PROTONIX [Concomitant]
     Route: 048
  4. DEPAKOTE [Concomitant]
     Dosage: 750MG QHS
     Route: 048
  5. MULTI-VITAMINS [Concomitant]
  6. ZOCOR [Concomitant]
     Route: 048
  7. DOXAZOSIN MESYLATE [Concomitant]
     Route: 048
  8. DOCUSATE [Concomitant]
  9. LORAZEPAM [Concomitant]
     Route: 048
  10. SEROQUEL [Concomitant]
     Route: 048
  11. FERROUS SULFATE TAB [Concomitant]
     Route: 048
  12. VITAMIN D [Concomitant]
     Route: 048
  13. VITAMIN C [Concomitant]
     Route: 048

REACTIONS (1)
  - GRANULOCYTOPENIA [None]
